FAERS Safety Report 7439946-9 (Version None)
Quarter: 2011Q2

REPORT INFORMATION
  Report Type: 
  Country: None (occurrence: None)
  Receive Date: 20110427
  Receipt Date: 20090809
  Transmission Date: 20111010
  Serious: Yes (Death, Hospitalization, Other)
  Sender: FDA-Public Use
  Company Number: US-BAYER-200929850NA

PATIENT
  Age: 78 Year
  Sex: Male
  Weight: 63.492 kg

DRUGS (14)
  1. LISINOPRIL [Concomitant]
  2. ACETYLSALICYLIC ACID SRT [Concomitant]
     Dosage: 325 MG, UNK
  3. TRASYLOL [Suspect]
     Indication: CORONARY ARTERY BYPASS
     Dosage: INITIAL TEST DOSE OF 2 ML
     Route: 042
     Dates: start: 20051115, end: 20051115
  4. TRASYLOL [Suspect]
     Dosage: 200CC LOADING DOSE FOLLOWED BY 50 ML/HOUR DRIP
     Dates: start: 20051115, end: 20051115
  5. ATORVASTATIN [Concomitant]
     Dosage: UNK
     Dates: start: 20051112
  6. DILTIAZEM [Concomitant]
     Dosage: UNK
     Dates: start: 20051112
  7. AMIODARONE [Concomitant]
     Dosage: UNK
     Dates: start: 20051112
  8. CIPROFLOXACIN [Concomitant]
     Dosage: UNK
     Dates: start: 20051112
  9. INSULIN [Concomitant]
  10. VISIPAQUE [IODINE,IODIXANOL] [Concomitant]
     Indication: CATHETERISATION CARDIAC
     Dosage: UNK
     Dates: start: 20051109
  11. HEPARIN [Concomitant]
     Dosage: 5000 U, UNK
  12. FUROSEMIDE [Concomitant]
     Dosage: UNK
     Dates: start: 20051112
  13. HEPARIN [Concomitant]
  14. LOPRESSOR [Concomitant]
     Dosage: 50 MG, UNK
     Route: 048

REACTIONS (11)
  - RENAL IMPAIRMENT [None]
  - UNEVALUABLE EVENT [None]
  - RENAL INJURY [None]
  - DEATH [None]
  - EMOTIONAL DISTRESS [None]
  - RENAL FAILURE [None]
  - FEAR [None]
  - PAIN [None]
  - STRESS [None]
  - ANXIETY [None]
  - INJURY [None]
